FAERS Safety Report 8926579 (Version 1)
Quarter: 2012Q4

REPORT INFORMATION
  Report Type: 
  Country: GB (occurrence: GB)
  Receive Date: 20121127
  Receipt Date: 20121127
  Transmission Date: 20130627
  Serious: Yes (Other)
  Sender: FDA-Public Use
  Company Number: PHHY2012GB106293

PATIENT
  Age: 66 Year
  Sex: Female

DRUGS (7)
  1. ATENOLOL [Suspect]
     Indication: HYPERTENSION
     Dates: start: 20121016, end: 20121023
  2. AMITRIPTYLINE [Concomitant]
     Dosage: 2 mg, QD
  3. ZOPICLONE [Concomitant]
  4. PARACETAMOL [Concomitant]
  5. LIVIAL [Concomitant]
     Indication: HORMONE REPLACEMENT THERAPY
  6. VISCOTEARS [Concomitant]
  7. SALIVA [Concomitant]

REACTIONS (2)
  - Jaundice [Not Recovered/Not Resolved]
  - Ocular icterus [Not Recovered/Not Resolved]
